FAERS Safety Report 12912338 (Version 1)
Quarter: 2016Q4

REPORT INFORMATION
  Report Type: Spontaneous
  Country: US (occurrence: US)
  Receive Date: 20161104
  Receipt Date: 20161104
  Transmission Date: 20170207
  Serious: Yes (Hospitalization, Other)
  Sender: FDA-Public Use
  Company Number: US-BAYER-2016-208063

PATIENT
  Age: 48 Year
  Sex: Female

DRUGS (28)
  1. PROAIR HFA [Concomitant]
     Active Substance: ALBUTEROL SULFATE
  2. SEROQUEL [Concomitant]
     Active Substance: QUETIAPINE FUMARATE
  3. GUAIFENESIN. [Concomitant]
     Active Substance: GUAIFENESIN
  4. CODEINE [Concomitant]
     Active Substance: CODEINE
  5. METOCLOPRAMIDE. [Concomitant]
     Active Substance: METOCLOPRAMIDE
  6. NYSTATIN. [Concomitant]
     Active Substance: NYSTATIN
  7. SPIRIVA [Concomitant]
     Active Substance: TIOTROPIUM BROMIDE MONOHYDRATE
  8. MUCINEX [Concomitant]
     Active Substance: GUAIFENESIN
  9. LOPRESSOR [Concomitant]
     Active Substance: METOPROLOL TARTRATE
  10. ADVAIR HFA [Concomitant]
     Active Substance: FLUTICASONE PROPIONATE\SALMETEROL XINAFOATE
  11. DIOVAN [Concomitant]
     Active Substance: VALSARTAN
  12. VERAPAMIL [Concomitant]
     Active Substance: VERAPAMIL HYDROCHLORIDE
  13. OMEPRAZOLE. [Concomitant]
     Active Substance: OMEPRAZOLE
  14. YASMIN [Suspect]
     Active Substance: DROSPIRENONE\ETHINYL ESTRADIOL
     Indication: CONTRACEPTION
  15. MELOXICAM. [Concomitant]
     Active Substance: MELOXICAM
  16. THEOPHYLLINE [Concomitant]
     Active Substance: THEOPHYLLINE ANHYDROUS
  17. CETIRIZINE [Concomitant]
     Active Substance: CETIRIZINE HYDROCHLORIDE
  18. LEVAQUIN [Concomitant]
     Active Substance: LEVOFLOXACIN
  19. CYMBALTA [Concomitant]
     Active Substance: DULOXETINE HYDROCHLORIDE
  20. DEPO-MEDROL [Concomitant]
     Active Substance: METHYLPREDNISOLONE ACETATE
  21. ATROVENT [Concomitant]
     Active Substance: IPRATROPIUM BROMIDE
  22. SYNTHROID [Concomitant]
     Active Substance: LEVOTHYROXINE SODIUM
  23. PROAIR HFA [Concomitant]
     Active Substance: ALBUTEROL SULFATE
  24. OCELLA [Suspect]
     Active Substance: DROSPIRENONE\ETHINYL ESTRADIOL
  25. TIZANIDINE. [Concomitant]
     Active Substance: TIZANIDINE
  26. LEVOTHYROXINE. [Concomitant]
     Active Substance: LEVOTHYROXINE
  27. SINGULAIR [Concomitant]
     Active Substance: MONTELUKAST SODIUM
  28. ALBUTEROL. [Concomitant]
     Active Substance: ALBUTEROL

REACTIONS (3)
  - Pulmonary embolism [None]
  - Cholecystitis [None]
  - Thrombophlebitis superficial [None]

NARRATIVE: CASE EVENT DATE: 2010
